FAERS Safety Report 17771938 (Version 4)
Quarter: 2020Q2

REPORT INFORMATION
  Report Type: Report from Study
  Country: US (occurrence: US)
  Receive Date: 20200512
  Receipt Date: 20200604
  Transmission Date: 20200714
  Serious: Yes (Life-Threatening, Hospitalization, Disabling, Congenital Anomaly, Other)
  Sender: FDA-Public Use
  Company Number: US-SA-2020SA091271

PATIENT

DRUGS (19)
  1. SARILUMAB [Suspect]
     Active Substance: SARILUMAB
     Dosage: 400 MG, 1X
     Route: 042
     Dates: start: 20200417, end: 20200417
  2. HYDROXYCHLOROQUINE [Concomitant]
     Active Substance: HYDROXYCHLOROQUINE
     Indication: COVID-19
     Dosage: 400MG DAY , 200 AFTER ARDS, EVERY 12H
     Route: 048
     Dates: start: 20200322, end: 2020
  3. NOREPINEPHRINE. [Concomitant]
     Active Substance: NOREPINEPHRINE
     Dosage: 5 UG/MIN
     Route: 042
     Dates: start: 20200427
  4. AZITHROMYCIN ANHYDROUS. [Concomitant]
     Active Substance: AZITHROMYCIN ANHYDROUS
     Indication: COVID-19
     Dosage: 500 MG, QD
     Route: 048
     Dates: start: 20200321, end: 20200321
  5. ACETAMINOPHEN. [Concomitant]
     Active Substance: ACETAMINOPHEN
     Indication: PYREXIA
     Route: 048
     Dates: start: 20200321
  6. PHENOBARBITAL. [Concomitant]
     Active Substance: PHENOBARBITAL
     Indication: EPILEPSY
     Dosage: 650 MG, 1X
     Route: 042
     Dates: start: 20200417, end: 20200417
  7. CEFTRIAXONE. [Concomitant]
     Active Substance: CEFTRIAXONE
     Indication: PNEUMONIA
     Dosage: 1000 MG, QD
     Route: 042
     Dates: start: 20200321, end: 20200324
  8. MEROPENEM. [Concomitant]
     Active Substance: MEROPENEM
     Dosage: 1000 MG, Q8H
     Route: 042
     Dates: start: 20200411, end: 20200416
  9. SARILUMAB [Suspect]
     Active Substance: SARILUMAB
     Indication: COVID-19
     Dosage: 400 MG, 1X
     Route: 042
     Dates: start: 20200322, end: 20200322
  10. MEROPENEM. [Concomitant]
     Active Substance: MEROPENEM
     Indication: PNEUMONIA
     Dosage: 1000 MG, Q8H
     Route: 042
     Dates: start: 20200402, end: 20200409
  11. NOREPINEPHRINE. [Concomitant]
     Active Substance: NOREPINEPHRINE
     Indication: HYPOTENSION
     Dosage: 8 MG CONTINOUS INFUSION
     Route: 042
     Dates: start: 20200322, end: 20200325
  12. VANCOMYCIN [Concomitant]
     Active Substance: VANCOMYCIN
     Indication: PNEUMONIA
     Dosage: 1000 MG, Q12H
     Dates: start: 20200324, end: 20200325
  13. VANCOMYCIN [Concomitant]
     Active Substance: VANCOMYCIN
     Dosage: 1500 MG, BID
     Dates: start: 20200411, end: 20200413
  14. PIPERACILLIN/TAZOBACTAM SANDOZ [Concomitant]
     Active Substance: PIPERACILLIN SODIUM\TAZOBACTAM SODIUM
     Indication: PNEUMONIA
     Dosage: 4.5 MG, Q6H
     Route: 042
     Dates: start: 20200324, end: 20200402
  15. SARILUMAB [Suspect]
     Active Substance: SARILUMAB
     Dosage: 400 MG, 1X
     Route: 042
     Dates: start: 20200411, end: 20200411
  16. MEROPENEM. [Concomitant]
     Active Substance: MEROPENEM
     Dosage: 1000 MG, Q8H
     Route: 042
     Dates: start: 20200421, end: 20200501
  17. VANCOMYCIN [Concomitant]
     Active Substance: VANCOMYCIN
     Dosage: 1500 MG, Q12H
     Dates: start: 20200326, end: 20200330
  18. VANCOMYCIN [Concomitant]
     Active Substance: VANCOMYCIN
     Dosage: 1500 MG, Q8H
     Dates: start: 20200413, end: 20200414
  19. ACETAMINOPHEN. [Concomitant]
     Active Substance: ACETAMINOPHEN
     Indication: PYREXIA
     Dosage: 650 MG, Q6H
     Route: 048
     Dates: start: 20200321

REACTIONS (8)
  - Urinary tract infection [Recovered/Resolved]
  - Urinary tract infection [Unknown]
  - Deep vein thrombosis [Unknown]
  - Hypotension [Unknown]
  - Fungal sepsis [Unknown]
  - Histoplasmosis [Unknown]
  - Pneumonia bacterial [Unknown]
  - Acute kidney injury [Recovered/Resolved]

NARRATIVE: CASE EVENT DATE: 20200329
